FAERS Safety Report 4422487-0 (Version None)
Quarter: 2004Q3

REPORT INFORMATION
  Report Type: 
  Country: None (occurrence: None)
  Receive Date: 20040806
  Receipt Date: 20011029
  Transmission Date: 20050211
  Serious: Yes (Hospitalization)
  Sender: FDA-Public Use
  Company Number: KII-2001-0012692

PATIENT
  Sex: Male

DRUGS (1)
  1. MS CONTIN [Suspect]
     Indication: PAIN
     Dosage: 100 MG, Q12H,

REACTIONS (3)
  - BLOOD GLUCOSE INCREASED [None]
  - INADEQUATE ANALGESIA [None]
  - PAIN [None]
